FAERS Safety Report 25085367 (Version 1)
Quarter: 2025Q1

REPORT INFORMATION
  Report Type: Spontaneous
  Country: US (occurrence: US)
  Receive Date: 20250317
  Receipt Date: 20250317
  Transmission Date: 20250409
  Serious: No
  Sender: Tilde Sciences
  Company Number: US-TILDE SCIENCES LLC-2024TIL00018

PATIENT
  Age: 55 Year
  Sex: Male
  Weight: 75.283 kg

DRUGS (7)
  1. DARAPRIM [Suspect]
     Active Substance: PYRIMETHAMINE
     Indication: Cerebral toxoplasmosis
     Dosage: 75 MG, 1X/DAY
     Route: 048
  2. NYSTATIN [Concomitant]
     Active Substance: NYSTATIN
  3. ZOFRAN [Concomitant]
     Active Substance: ONDANSETRON HYDROCHLORIDE
  4. MIRALAX [Concomitant]
     Active Substance: POLYETHYLENE GLYCOL 3350
  5. GAS-X [Concomitant]
     Active Substance: DIMETHICONE
  6. REFRESH OPHTHALMIC [Concomitant]
  7. DEEP SEA [Concomitant]

REACTIONS (2)
  - Rash [Recovering/Resolving]
  - Off label use [Not Recovered/Not Resolved]

NARRATIVE: CASE EVENT DATE: 20241205
